FAERS Safety Report 14034097 (Version 2)
Quarter: 2017Q4

REPORT INFORMATION
  Report Type: Spontaneous
  Country: JP (occurrence: JP)
  Receive Date: 20171003
  Receipt Date: 20171013
  Transmission Date: 20180321
  Serious: Yes (Hospitalization, Other)
  Sender: FDA-Public Use
  Company Number: JP-PFIZER INC-2016227680

PATIENT
  Age: 74 Year
  Sex: Male
  Weight: 41.4 kg

DRUGS (12)
  1. IRINOTECAN HCL [Suspect]
     Active Substance: IRINOTECAN HYDROCHLORIDE
     Indication: RECTAL CANCER STAGE III
     Dosage: 150 MG/M2 DAY 1 (FIRST COURSE)
     Dates: start: 20130807
  2. FLUOROURACIL. [Suspect]
     Active Substance: FLUOROURACIL
     Indication: RECTAL CANCER STAGE III
     Dosage: 400 MG/M2 , (BOLUS ON DAY 1)
     Dates: start: 20130807
  3. CALCIUM FOLINATE [Suspect]
     Active Substance: LEUCOVORIN CALCIUM
     Indication: RECTAL CANCER STAGE III
     Dosage: 200 MG/M2 DAY 1 (1ST COURSE)
     Dates: start: 20130807
  4. FLUOROURACIL. [Suspect]
     Active Substance: FLUOROURACIL
     Dosage: 1920 MG/M2, USING THE SAME DOSE AS THE 2ND COURSE
  5. CALCIUM FOLINATE [Suspect]
     Active Substance: LEUCOVORIN CALCIUM
     Dosage: 160 MG/M2 DAY 1 (2ND COURSE)
     Dates: start: 201308
  6. CALCIUM FOLINATE [Suspect]
     Active Substance: LEUCOVORIN CALCIUM
     Dosage: 160 MG/M2, USING THE SAME DOSE AS THE 2ND COURSE
  7. IRINOTECAN HCL [Suspect]
     Active Substance: IRINOTECAN HYDROCHLORIDE
     Dosage: 120 MG/M2, (USING THE SAME DOSE AS THE 2ND COURSE)
  8. IRINOTECAN HCL [Suspect]
     Active Substance: IRINOTECAN HYDROCHLORIDE
     Dosage: 120 MG/M2 DAY 1 (SECOND COURSE)
     Dates: start: 201308
  9. CETUXIMAB. [Suspect]
     Active Substance: CETUXIMAB
     Indication: RECTAL CANCER STAGE III
     Dosage: 250 MG/M2 ON DAYS 1 AND 8 (SECOND COURSE)
     Dates: start: 201308
  10. CETUXIMAB. [Suspect]
     Active Substance: CETUXIMAB
     Dosage: 250 MG/M2, USING THE SAME DOSE AS THE 2ND COURSE
  11. FLUOROURACIL. [Suspect]
     Active Substance: FLUOROURACIL
     Dosage: 2400 MG/M2 (FIRST COURSE, 48 HOURS CONTINUOUS ADMINISTRATION)
     Dates: start: 20130807
  12. FLUOROURACIL. [Suspect]
     Active Substance: FLUOROURACIL
     Dosage: 1920 MG/M2 (48 HOURS CONTINUOUS ADMINISTRATION)
     Dates: start: 201308

REACTIONS (2)
  - Neutropenia [Unknown]
  - Interstitial lung disease [Recovering/Resolving]
